FAERS Safety Report 25434342 (Version 1)
Quarter: 2025Q2

REPORT INFORMATION
  Report Type: Spontaneous
  Country: KR (occurrence: KR)
  Receive Date: 20250613
  Receipt Date: 20250613
  Transmission Date: 20250716
  Serious: Yes (Other)
  Sender: ORGANON
  Company Number: KR-ORGANON-O2506KOR000449

PATIENT
  Sex: Female

DRUGS (1)
  1. ETONOGESTREL [Suspect]
     Active Substance: ETONOGESTREL
     Route: 059
     Dates: start: 20250421, end: 20250604

REACTIONS (4)
  - Vaginal haemorrhage [Unknown]
  - Inflammation [Unknown]
  - Pain in extremity [Unknown]
  - Discomfort [Unknown]

NARRATIVE: CASE EVENT DATE: 20250101
